FAERS Safety Report 6776555-9 (Version None)
Quarter: 2010Q2

REPORT INFORMATION
  Report Type: 
  Country: None (occurrence: None)
  Receive Date: 20100615
  Receipt Date: 20100531
  Transmission Date: 20101027
  Serious: Yes (Hospitalization)
  Sender: FDA-Public Use
  Company Number: 2010AP001150

PATIENT
  Age: 44 Year
  Sex: Male

DRUGS (9)
  1. LAMOTRIGINE [Suspect]
     Indication: ILL-DEFINED DISORDER
     Dosage: 25 MG;BID; PO
     Route: 048
     Dates: start: 20100427, end: 20100513
  2. AMISULPRIDE (AMISULPRIDE) [Concomitant]
  3. CITALOPRAM HYDROBROMIDE [Concomitant]
  4. CLOZAPINE [Concomitant]
  5. COD LIVER OIL FORTIFIED TAB [Concomitant]
  6. HYOSCINE HBR HYT [Concomitant]
  7. SALBUTAMOL (SALBUTAMOL) [Concomitant]
  8. SIMVASTATIN [Concomitant]
  9. VALPROATE SODIUM [Concomitant]

REACTIONS (12)
  - C-REACTIVE PROTEIN INCREASED [None]
  - CONFUSIONAL STATE [None]
  - HAEMATOCRIT DECREASED [None]
  - HAEMOGLOBIN DECREASED [None]
  - MENTAL DISORDER [None]
  - PYREXIA [None]
  - RASH GENERALISED [None]
  - RED BLOOD CELL COUNT DECREASED [None]
  - SOMNOLENCE [None]
  - SPUTUM DISCOLOURED [None]
  - TACHYCARDIA [None]
  - VOMITING [None]
